FAERS Safety Report 5461037-7 (Version None)
Quarter: 2007Q3

REPORT INFORMATION
  Report Type: 
  Country: None (occurrence: None)
  Receive Date: 20070810
  Receipt Date: 20060901
  Transmission Date: 20080115
  Serious: Yes (Death, Other)
  Sender: FDA-Public Use
  Company Number: 200614164BWH

PATIENT

DRUGS (2)
  1. TRASYLOL [Suspect]
     Indication: CORONARY ARTERY BYPASS
  2. VIOXX [Suspect]
     Indication: CORONARY ARTERY BYPASS

REACTIONS (3)
  - DEATH [None]
  - RENAL FAILURE [None]
  - SUDDEN DEATH [None]
